FAERS Safety Report 22206526 (Version 1)
Quarter: 2023Q2

REPORT INFORMATION
  Report Type: Report from Study
  Country: US (occurrence: US)
  Receive Date: 20230413
  Receipt Date: 20230413
  Transmission Date: 20230722
  Serious: Yes (Other)
  Sender: FDA-Public Use
  Company Number: US-MYLANLABS-2023M1037563

PATIENT
  Sex: Female

DRUGS (6)
  1. ASCORBIC ACID [Suspect]
     Active Substance: ASCORBIC ACID
     Indication: Mast cell activation syndrome
     Dosage: UNK
     Route: 065
  2. KETOTIFEN [Suspect]
     Active Substance: KETOTIFEN
     Indication: Mast cell activation syndrome
     Dosage: UNK
     Route: 048
  3. NALTREXONE [Suspect]
     Active Substance: NALTREXONE
     Indication: Mast cell activation syndrome
     Dosage: UNK
     Route: 065
  4. QUERCETIN [Suspect]
     Active Substance: QUERCETIN
     Indication: Mast cell activation syndrome
     Dosage: UNK
     Route: 065
  5. VITAMIN D [Suspect]
     Active Substance: VITAMIN D NOS
     Indication: Mast cell activation syndrome
     Dosage: UNK
     Route: 065
  6. IMMUNE GLOBULIN NOS [Suspect]
     Active Substance: IMMUNE GLOBULIN NOS
     Indication: Mast cell activation syndrome
     Dosage: UNK
     Route: 042

REACTIONS (1)
  - Drug ineffective [Unknown]
